FAERS Safety Report 5347623-3 (Version None)
Quarter: 2007Q2

REPORT INFORMATION
  Report Type: 
  Country: None (occurrence: None)
  Receive Date: 20070604
  Receipt Date: 20070604
  Transmission Date: 20071010
  Serious: Yes (Hospitalization)
  Sender: FDA-Public Use
  Company Number: None

PATIENT
  Age: 52 Year
  Sex: Male
  Weight: 69.8539 kg

DRUGS (5)
  1. ADVAIR DISKUS 100/50 [Suspect]
     Indication: COUGH
     Dosage: ONE PULL BY MOUTH 2/DAY-AM + PM PO
     Route: 048
     Dates: start: 20061223, end: 20070104
  2. ADVAIR DISKUS 100/50 [Suspect]
     Indication: WHEEZING
     Dosage: ONE PULL BY MOUTH 2/DAY-AM + PM PO
     Route: 048
     Dates: start: 20061223, end: 20070104
  3. ADVAIR DISKUS 100/50 [Suspect]
     Dosage: ONE PULL BY MOUTH 2/DAY- AM + PM PO
     Route: 048
     Dates: start: 20061208, end: 20061223
  4. ASPIRIN [Concomitant]
  5. VITAMIN CAP [Concomitant]

REACTIONS (8)
  - BALANCE DISORDER [None]
  - BURNING SENSATION [None]
  - DYSGEUSIA [None]
  - ERYTHEMA [None]
  - GAIT DISTURBANCE [None]
  - PERIPHERAL COLDNESS [None]
  - SENSORY DISTURBANCE [None]
  - THROAT IRRITATION [None]
